FAERS Safety Report 9726618 (Version 1)
Quarter: 2013Q4

REPORT INFORMATION
  Report Type: Spontaneous
  Country: IT (occurrence: IT)
  Receive Date: 20131203
  Receipt Date: 20131203
  Transmission Date: 20140711
  Serious: Yes (Other)
  Sender: FDA-Public Use
  Company Number: IT-GLAXOSMITHKLINE-B0949829A

PATIENT
  Sex: Female

DRUGS (4)
  1. LAMICTAL [Suspect]
     Indication: CONVULSION
     Route: 065
  2. LYRICA [Suspect]
     Indication: CONVULSION
     Route: 065
  3. CELLCEPT [Concomitant]
  4. COUMADIN [Concomitant]

REACTIONS (3)
  - Gastric haemorrhage [Unknown]
  - Gastric disorder [Unknown]
  - Drug ineffective [Unknown]
